FAERS Safety Report 16182051 (Version 4)
Quarter: 2019Q2

REPORT INFORMATION
  Report Type: Report from Study
  Country: US (occurrence: US)
  Receive Date: 20190410
  Receipt Date: 20190605
  Transmission Date: 20190711
  Serious: Yes (Other)
  Sender: FDA-Public Use
  Company Number: PHEH2019US015021

PATIENT
  Sex: Male

DRUGS (1)
  1. PROMACTA [Suspect]
     Active Substance: ELTROMBOPAG OLAMINE
     Indication: PRODUCT USED FOR UNKNOWN INDICATION
     Dosage: UNK
     Route: 065

REACTIONS (7)
  - Internal haemorrhage [Unknown]
  - Amnesia [Unknown]
  - Blindness [Unknown]
  - Pain [Unknown]
  - Mental disorder [Unknown]
  - Tremor [Unknown]
  - Road traffic accident [Unknown]
